FAERS Safety Report 10576105 (Version 1)
Quarter: 2014Q4

REPORT INFORMATION
  Report Type: Spontaneous
  Country: US (occurrence: None)
  Receive Date: 20141110
  Receipt Date: 20141110
  Transmission Date: 20150529
  Serious: Yes (Hospitalization)
  Sender: FDA-Public Use
  Company Number: None

PATIENT
  Age: 70 Year
  Sex: Male
  Weight: 50.98 kg

DRUGS (13)
  1. MINOCYCLINE [Concomitant]
     Active Substance: MINOCYCLINE\MINOCYCLINE HYDROCHLORIDE
  2. PREDNISONE. [Concomitant]
     Active Substance: PREDNISONE
  3. ONDANSETRON [Concomitant]
     Active Substance: ONDANSETRON
  4. OXYCODONE [Concomitant]
     Active Substance: OXYCODONE
  5. PAZOPANIB [Suspect]
     Active Substance: PAZOPANIB
     Indication: METASTASIS
     Dosage: 600 MG  PO Q DAY
     Route: 048
     Dates: start: 20140618
  6. SENNA [Concomitant]
     Active Substance: SENNA LEAF\SENNOSIDES\SENNOSIDES A AND B
  7. WARFARIN [Concomitant]
     Active Substance: WARFARIN
  8. CETUXIMAB [Suspect]
     Active Substance: CETUXIMAB
     Indication: SQUAMOUS CELL CARCINOMA OF HEAD AND NECK
     Dosage: 250 MG/M2 ONCE A WEEK
     Dates: start: 20140618
  9. CETUXIMAB [Suspect]
     Active Substance: CETUXIMAB
     Indication: METASTASIS
     Dosage: 250 MG/M2 ONCE A WEEK
     Dates: start: 20140618
  10. MEGESTROL [Concomitant]
     Active Substance: MEGESTROL
  11. NEXIUM [Concomitant]
     Active Substance: ESOMEPRAZOLE MAGNESIUM
  12. SYMBICORT [Concomitant]
     Active Substance: BUDESONIDE\FORMOTEROL FUMARATE DIHYDRATE
  13. PAZOPANIB [Suspect]
     Active Substance: PAZOPANIB
     Indication: SQUAMOUS CELL CARCINOMA OF HEAD AND NECK
     Dosage: 600 MG  PO Q DAY
     Route: 048
     Dates: start: 20140618

REACTIONS (4)
  - Productive cough [None]
  - Fatigue [None]
  - Decreased appetite [None]
  - Pneumothorax [None]

NARRATIVE: CASE EVENT DATE: 20141105
